FAERS Safety Report 7529897-3 (Version None)
Quarter: 2011Q2

REPORT INFORMATION
  Report Type: 
  Country: None (occurrence: None)
  Receive Date: 20110607
  Receipt Date: 20110524
  Transmission Date: 20111010
  Serious: No
  Sender: FDA-Public Use
  Company Number: US-B.I. PHARMACEUTICALS,INC./RIDGEFIELD-2011-BP-01278BP

PATIENT
  Sex: Female

DRUGS (9)
  1. DIGOXIN [Concomitant]
     Indication: CARDIAC DISORDER
  2. SYNTHROID [Concomitant]
  3. PRADAXA [Suspect]
     Indication: ATRIAL FIBRILLATION
     Dosage: 300 MG
     Route: 048
     Dates: start: 20101222
  4. CRESTOR [Concomitant]
     Indication: BLOOD CHOLESTEROL INCREASED
  5. METOPROLOL SUCCINATE [Concomitant]
     Indication: CARDIAC DISORDER
  6. PRADAXA [Suspect]
     Indication: CARDIAC DISORDER
  7. PEPCID [Concomitant]
     Indication: ULCER
  8. CALCIUM CARBONATE [Concomitant]
     Indication: PROPHYLAXIS
  9. SPIRONOLACTONE [Concomitant]

REACTIONS (2)
  - MALAISE [None]
  - URINARY INCONTINENCE [None]
